FAERS Safety Report 6009781-7 (Version None)
Quarter: 2008Q4

REPORT INFORMATION
  Report Type: 
  Country: None (occurrence: None)
  Receive Date: 20081217
  Receipt Date: 20081112
  Transmission Date: 20090506
  Serious: No
  Sender: FDA-Public Use
  Company Number: US-BAYER-200838611NA

PATIENT
  Age: 35 Year
  Sex: Female
  Weight: 79 kg

DRUGS (5)
  1. YAZ [Suspect]
     Indication: POLYCYSTIC OVARIES
     Route: 048
     Dates: start: 20080901
  2. METFORMIN HCL [Concomitant]
  3. WELLBUTRIN [Concomitant]
  4. THYROID MEDICATION NOS [Concomitant]
  5. SINGULAIR [Concomitant]

REACTIONS (6)
  - ACNE [None]
  - BREAST TENDERNESS [None]
  - METRORRHAGIA [None]
  - NAUSEA [None]
  - NO ADVERSE EVENT [None]
  - WEIGHT LOSS POOR [None]
